FAERS Safety Report 24574323 (Version 4)
Quarter: 2025Q3

REPORT INFORMATION
  Report Type: Report from Study
  Country: TW (occurrence: TW)
  Receive Date: 20241104
  Receipt Date: 20250809
  Transmission Date: 20251020
  Serious: Yes (Other)
  Sender: ALEXION PHARMACEUTICALS
  Company Number: TW-AstraZeneca-CH-00734490A

PATIENT
  Age: 33 Year
  Sex: Female
  Weight: 55 kg

DRUGS (3)
  1. DURVALUMAB [Suspect]
     Active Substance: DURVALUMAB
     Dosage: 720 MILLIGRAM, Q3W
     Dates: start: 20230717, end: 20240604
  2. AVASTIN [Concomitant]
     Active Substance: BEVACIZUMAB
  3. ENHERTU [Concomitant]
     Active Substance: FAM-TRASTUZUMAB DERUXTECAN-NXKI

REACTIONS (3)
  - Metastases to lung [Not Recovered/Not Resolved]
  - Cough [Unknown]
  - Nodule [Unknown]

NARRATIVE: CASE EVENT DATE: 20240801
